FAERS Safety Report 8048342-5 (Version None)
Quarter: 2012Q1

REPORT INFORMATION
  Report Type: 
  Country: None (occurrence: None)
  Receive Date: 20120117
  Receipt Date: 20120111
  Transmission Date: 20120608
  Serious: No
  Sender: FDA-Public Use
  Company Number: US-PFIZER INC-2012009921

PATIENT
  Age: 56 Year
  Sex: Female
  Weight: 49.887 kg

DRUGS (6)
  1. LYRICA [Concomitant]
     Indication: FIBROMYALGIA
     Dosage: 100 MG, 3X/DAY
  2. FLEXERIL [Concomitant]
     Indication: BACK DISORDER
     Dosage: 10 MG, AS NEEDED
  3. CHANTIX [Suspect]
     Indication: SMOKING CESSATION THERAPY
     Dosage: UNK
     Route: 048
     Dates: start: 20070101
  4. TRAMADOL HCL [Suspect]
     Indication: BACK DISORDER
     Dosage: 50 MG, AS NEEDED
  5. LORTAB [Concomitant]
     Indication: BACK DISORDER
     Dosage: 7.5/500 MG, AS NEEDED
  6. KLONOPIN [Concomitant]
     Indication: SCIATIC NERVE INJURY
     Dosage: 10 MG, 3X/DAY

REACTIONS (2)
  - NIGHTMARE [None]
  - DRUG INEFFECTIVE [None]
